FAERS Safety Report 9174250 (Version 1)
Quarter: 2013Q1

REPORT INFORMATION
  Report Type: Spontaneous
  Country: GB (occurrence: GB)
  Receive Date: 20130320
  Receipt Date: 20130320
  Transmission Date: 20140127
  Serious: Yes (Other)
  Sender: FDA-Public Use
  Company Number: GB-009507513-1303GBR006182

PATIENT
  Age: 69 Year
  Sex: Female
  Weight: 53 kg

DRUGS (6)
  1. EZETIMIBE [Suspect]
     Dosage: UNK
     Route: 048
     Dates: start: 20130226
  2. CELLUVISC [Concomitant]
     Dosage: UNK
     Dates: start: 20130219
  3. GAVISCON ADVANCE [Concomitant]
     Dosage: UNK
     Dates: start: 20121204
  4. MOXONIDINE [Concomitant]
     Dosage: UNK
  5. REGULAR INSULIN NOVO NORDISK [Concomitant]
     Dosage: 1 MG, UNK
     Dates: start: 20130118, end: 20130215
  6. OMEPRAZOLE [Concomitant]
     Dosage: UNK
     Dates: start: 20130122

REACTIONS (2)
  - Drug eruption [Recovered/Resolved]
  - Arthralgia [Recovered/Resolved]
